FAERS Safety Report 7590925-0 (Version None)
Quarter: 2011Q3

REPORT INFORMATION
  Report Type: 
  Country: None (occurrence: None)
  Receive Date: 20110705
  Receipt Date: 20110627
  Transmission Date: 20111222
  Serious: Yes (Hospitalization)
  Sender: FDA-Public Use
  Company Number: PHHO2011JP07082

PATIENT
  Sex: Female
  Weight: 43 kg

DRUGS (11)
  1. AFINITOR [Suspect]
     Indication: TUBEROUS SCLEROSIS
     Dosage: DOUBLE BLIND
     Route: 048
     Dates: start: 20101211, end: 20110527
  2. DEPAKENE [Suspect]
     Indication: EPILEPSY
     Dosage: 1200 MG, DAILY
     Route: 048
     Dates: start: 20100601, end: 20110305
  3. PRAVASTATIN SODIUM [Concomitant]
     Indication: HYPERLIPIDAEMIA
     Dosage: 5 MG, UNK
     Route: 048
     Dates: start: 20071121
  4. BLINDED PLACEBO [Suspect]
     Indication: TUBEROUS SCLEROSIS
     Dosage: DOUBLE BLIND
     Route: 048
     Dates: start: 20101211, end: 20110527
  5. EURODIN [Concomitant]
     Indication: INSOMNIA
     Dosage: 2 MG, UNK
     Route: 048
     Dates: start: 20100601
  6. BLINDED NO TREATMENT RECEIVED [Suspect]
     Indication: TUBEROUS SCLEROSIS
     Dosage: DOUBLE BLIND
     Route: 048
     Dates: start: 20101211, end: 20110527
  7. TEGRETOL [Suspect]
     Dosage: 1200 MG, DAILY
     Route: 048
     Dates: start: 20110306
  8. PHENYTOIN [Suspect]
     Indication: EPILEPSY
     Dosage: 300 MG, DAILY
     Route: 048
     Dates: start: 20100601
  9. DEPAKENE [Suspect]
     Dosage: 1800 MG, DAILY
     Route: 048
     Dates: start: 20110306
  10. TEGRETOL [Suspect]
     Indication: EPILEPSY
     Dosage: 600 MG, DAILY
     Route: 048
     Dates: start: 20100601, end: 20110305
  11. ZONISAMIDE [Suspect]
     Indication: EPILEPSY
     Dosage: 200 MG, DAILY
     Route: 048
     Dates: start: 20100601

REACTIONS (6)
  - LOSS OF CONSCIOUSNESS [None]
  - WEIGHT DECREASED [None]
  - DECREASED APPETITE [None]
  - GRAND MAL CONVULSION [None]
  - VOMITING [None]
  - FATIGUE [None]
